FAERS Safety Report 20321858 (Version 7)
Quarter: 2023Q1

REPORT INFORMATION
  Report Type: Report from Study
  Country: US (occurrence: US)
  Receive Date: 20220111
  Receipt Date: 20230120
  Transmission Date: 20230418
  Serious: No
  Sender: FDA-Public Use
  Company Number: US-NOVARTISTESTPH-NVSC2022US004264

PATIENT
  Age: 80 Year
  Sex: Male

DRUGS (1)
  1. ENTRESTO [Suspect]
     Active Substance: SACUBITRIL\VALSARTAN
     Indication: Cardiac failure
     Dosage: 1 DOSAGE FORM, BID
     Route: 048
     Dates: start: 202111

REACTIONS (13)
  - Malaise [Unknown]
  - Dyspnoea [Unknown]
  - Poor quality sleep [Unknown]
  - Memory impairment [Unknown]
  - Heart rate decreased [Unknown]
  - Decreased activity [Unknown]
  - Feeling abnormal [Unknown]
  - Dizziness [Unknown]
  - Tongue discolouration [Unknown]
  - Fall [Unknown]
  - Cardiac disorder [Unknown]
  - Coronavirus infection [Unknown]
  - Wrong technique in product usage process [Unknown]

NARRATIVE: CASE EVENT DATE: 20220108
